FAERS Safety Report 25340357 (Version 3)
Quarter: 2025Q4

REPORT INFORMATION
  Report Type: Spontaneous
  Country: US (occurrence: US)
  Receive Date: 20250521
  Receipt Date: 20251119
  Transmission Date: 20260118
  Serious: Yes (Hospitalization)
  Sender: AZURITY PHARMACEUTICALS
  Company Number: US-AZURITY PHARMACEUTICALS, INC.-AZR202504-001066

PATIENT
  Sex: Female

DRUGS (2)
  1. DANZITEN [Suspect]
     Active Substance: NILOTINIB
     Indication: Philadelphia positive chronic myeloid leukaemia
     Dosage: 71 MILLIGRAM, BID
     Route: 065
     Dates: start: 202504
  2. DANZITEN [Suspect]
     Active Substance: NILOTINIB
     Dosage: 71 MILLIGRAM, BID
     Route: 065
     Dates: start: 202504

REACTIONS (13)
  - Chest pain [Unknown]
  - Hypertension [Unknown]
  - Fall [Unknown]
  - Skin disorder [Unknown]
  - Peripheral swelling [Unknown]
  - Illness [Unknown]
  - Dry skin [Unknown]
  - Pruritus [Unknown]
  - Fatigue [Unknown]
  - Dyspepsia [Unknown]
  - Malaise [Unknown]
  - Vertigo [Unknown]
  - Product use issue [Unknown]

NARRATIVE: CASE EVENT DATE: 20250101
